FAERS Safety Report 8990736 (Version 1)
Quarter: 2012Q4

REPORT INFORMATION
  Report Type: Spontaneous
  Country: US (occurrence: None)
  Receive Date: 20121226
  Receipt Date: 20121226
  Transmission Date: 20130627
  Serious: Yes (Hospitalization)
  Sender: FDA-Public Use
  Company Number: None

PATIENT
  Age: 55 Year
  Sex: Female
  Weight: 36.7 kg

DRUGS (1)
  1. TEMOZOLOMIDE [Suspect]
     Indication: GLIOBLASTOMA MULTIFORME
     Dosage: 150mg  Day 1-5/of 28D cycle  by mouth
     Route: 048
     Dates: start: 20121204, end: 20121208

REACTIONS (3)
  - Cellulitis [None]
  - CD4 lymphocytes decreased [None]
  - Pain in extremity [None]
